FAERS Safety Report 4344361-0 (Version None)
Quarter: 2004Q2

REPORT INFORMATION
  Report Type: 
  Country: None (occurrence: None)
  Receive Date: 20040419
  Receipt Date: 20040407
  Transmission Date: 20050107
  Serious: Yes (Hospitalization)
  Sender: FDA-Public Use
  Company Number: 2003170364FR

PATIENT
  Age: 39 Year
  Sex: Female

DRUGS (3)
  1. SULFASALAZINE [Suspect]
     Indication: CROHN'S DISEASE
     Dosage: 4 G/DAY, ORAL
     Route: 048
     Dates: start: 20030415, end: 20030630
  2. PREDNISONE TAB [Suspect]
     Dosage: 50 MG/DAY, ORAL
     Route: 048
     Dates: start: 20030515
  3. AZATHIOPRINE [Suspect]
     Dosage: 100 MG/DAY, ORAL
     Route: 048
     Dates: start: 20030515, end: 20030630

REACTIONS (16)
  - ASTHENIA [None]
  - BONE PAIN [None]
  - C-REACTIVE PROTEIN INCREASED [None]
  - CHILLS [None]
  - CONVULSION [None]
  - DYSGEUSIA [None]
  - EPILEPSY [None]
  - FALL [None]
  - HEMIANOPIA [None]
  - HEPATOMEGALY [None]
  - MASS [None]
  - PHOTOSENSITIVITY REACTION [None]
  - PYREXIA [None]
  - RENAL CYST [None]
  - VISION BLURRED [None]
  - VISUAL PATHWAY DISORDER [None]
